FAERS Safety Report 15344174 (Version 1)
Quarter: 2018Q3

REPORT INFORMATION
  Report Type: Spontaneous
  Country: US (occurrence: US)
  Receive Date: 20180903
  Receipt Date: 20180903
  Transmission Date: 20181010
  Serious: No
  Sender: FDA-Public Use
  Company Number: US-009507513-1808USA005798

PATIENT
  Age: 42 Year
  Sex: Male

DRUGS (5)
  1. NOXAFIL [Suspect]
     Active Substance: POSACONAZOLE
     Indication: MUCORMYCOSIS
     Dosage: UNK
     Route: 048
  2. POLYMYXIN B SULFATE. [Concomitant]
     Active Substance: POLYMYXIN B SULFATE
     Indication: MUCORMYCOSIS
     Dosage: UNK
  3. AZTREONAM. [Concomitant]
     Active Substance: AZTREONAM
     Indication: MUCORMYCOSIS
     Dosage: 2 G EVERY 8 HOURS
  4. AMPHOTERICIN B. [Concomitant]
     Active Substance: AMPHOTERICIN B
     Indication: MUCORMYCOSIS
     Dosage: UNK
  5. AVIBACTAM SODIUM (+) CEFTAZIDIME [Concomitant]
     Indication: MUCORMYCOSIS
     Dosage: 2.5 G EVERY 8 HOURS

REACTIONS (1)
  - Off label use [Unknown]
